FAERS Safety Report 16036500 (Version 1)
Quarter: 2019Q1

REPORT INFORMATION
  Report Type: Spontaneous
  Country: BR (occurrence: BR)
  Receive Date: 20190305
  Receipt Date: 20190305
  Transmission Date: 20190418
  Serious: Yes (Hospitalization)
  Sender: FDA-Public Use
  Company Number: BR-FRESENIUS KABI-FK201902350

PATIENT
  Age: 7 Year
  Sex: Female
  Weight: 34 kg

DRUGS (4)
  1. SALBUTAMOL [Suspect]
     Active Substance: ALBUTEROL
     Indication: ASTHMA
     Route: 055
  2. METHYLPREDNISOLONE (MANUFACTURER UNKNOWN) [Suspect]
     Active Substance: METHYLPREDNISOLONE
     Indication: ASTHMA
     Route: 065
  3. RANITIDINE (MANUFACTURER UNKNOWN) [Suspect]
     Active Substance: RANITIDINE
     Indication: PROPHYLAXIS AGAINST GASTROINTESTINAL ULCER
  4. RANITIDINE (MANUFACTURER UNKNOWN) [Suspect]
     Active Substance: RANITIDINE
     Indication: UPPER GASTROINTESTINAL HAEMORRHAGE
     Route: 042

REACTIONS (3)
  - Hallucination [None]
  - Delirium [Recovered/Resolved]
  - Psychomotor hyperactivity [None]
